FAERS Safety Report 21103131 (Version 1)
Quarter: 2022Q3

REPORT INFORMATION
  Report Type: Spontaneous
  Country: CH (occurrence: CH)
  Receive Date: 20220720
  Receipt Date: 20220720
  Transmission Date: 20221026
  Serious: Yes (Hospitalization)
  Sender: FDA-Public Use
  Company Number: CH-SM-2022-17186

PATIENT
  Age: 68 Year
  Sex: Female

DRUGS (5)
  1. AUBAGIO [Suspect]
     Active Substance: TERIFLUNOMIDE
     Indication: Multiple sclerosis
     Dosage: 14 MG, QD
     Route: 048
     Dates: start: 20210815, end: 20220325
  2. LOSARTAN [Concomitant]
     Active Substance: LOSARTAN
     Dosage: 100 MG, QD
     Route: 048
  3. MAGNESIUM BIOMED [MAGNESIUM ASPARTATE] [Concomitant]
     Dosage: 1 DF, PRN
     Route: 048
  4. ESOMEPRAZOL [ESOMEPRAZOLE SODIUM] [Concomitant]
     Dosage: 40 MG, QD
     Route: 048
  5. ZYRTEC [Concomitant]
     Active Substance: CETIRIZINE HYDROCHLORIDE
     Dosage: 10 MG, QD
     Route: 048

REACTIONS (7)
  - Vomiting [Recovering/Resolving]
  - Abdominal pain [Recovering/Resolving]
  - Nausea [Recovering/Resolving]
  - Gastrointestinal disorder [Recovering/Resolving]
  - Diarrhoea [Recovering/Resolving]
  - Blood pressure increased [Recovering/Resolving]
  - Alopecia [Recovering/Resolving]

NARRATIVE: CASE EVENT DATE: 20210901
